FAERS Safety Report 9784262 (Version 1)
Quarter: 2013Q4

REPORT INFORMATION
  Report Type: Spontaneous
  Country: US (occurrence: US)
  Receive Date: 20131226
  Receipt Date: 20131226
  Transmission Date: 20140711
  Serious: No
  Sender: FDA-Public Use
  Company Number: US-BIOGENIDEC-2013BI121853

PATIENT
  Age: 42 Year
  Sex: Male
  Weight: 99 kg

DRUGS (12)
  1. TECFIDERA [Suspect]
     Indication: MULTIPLE SCLEROSIS
     Route: 048
     Dates: start: 201310
  2. BACLOFEN [Concomitant]
  3. MECLIZINE [Concomitant]
  4. NEOMYCIN [Concomitant]
  5. AMOXICILLIN [Concomitant]
  6. LISINOPRIL [Concomitant]
  7. RAPAFLO [Concomitant]
  8. PREDNISONE [Concomitant]
  9. PREDNISONE [Concomitant]
  10. NUVIGIL [Concomitant]
  11. COQ10 [Concomitant]
  12. CREATININE [Concomitant]

REACTIONS (2)
  - Blood testosterone decreased [Unknown]
  - Asthenia [Unknown]
